FAERS Safety Report 25425239 (Version 1)
Quarter: 2025Q2

REPORT INFORMATION
  Report Type: Spontaneous
  Country: US (occurrence: US)
  Receive Date: 20250611
  Receipt Date: 20250611
  Transmission Date: 20250717
  Serious: Yes (Hospitalization)
  Sender: VERTEX
  Company Number: US-VERTEX PHARMACEUTICALS-2025-009352

PATIENT
  Age: 62 Year
  Sex: Male

DRUGS (1)
  1. JOURNAVX [Suspect]
     Active Substance: SUZETRIGINE
     Indication: Product used for unknown indication
     Route: 048

REACTIONS (4)
  - Lip swelling [Unknown]
  - Swollen tongue [Unknown]
  - Swelling face [Unknown]
  - Dyspnoea [Recovering/Resolving]
